FAERS Safety Report 18219088 (Version 1)
Quarter: 2020Q3

REPORT INFORMATION
  Report Type: Report from Study
  Country: None (occurrence: RO)
  Receive Date: 20200901
  Receipt Date: 20200901
  Transmission Date: 20201103
  Serious: Yes (Death, Hospitalization)
  Sender: FDA-Public Use
  Company Number: RO-ABBVIE-20P-135-3537257-00

PATIENT
  Age: 72 Year
  Sex: Female

DRUGS (14)
  1. VENETOCLAX. [Suspect]
     Active Substance: VENETOCLAX
     Route: 048
     Dates: start: 20200717, end: 20200717
  2. VENETOCLAX. [Suspect]
     Active Substance: VENETOCLAX
     Route: 048
     Dates: start: 20200719, end: 20200811
  3. MAGNERO [Concomitant]
     Indication: HYPOMAGNESAEMIA
     Route: 048
  4. CALCIDIN [Concomitant]
     Indication: HYPOCALCAEMIA
     Route: 048
  5. TRITACE [Concomitant]
     Active Substance: RAMIPRIL
     Indication: HYPERTENSION
     Route: 048
  6. ROSUVASTATIN. [Concomitant]
     Active Substance: ROSUVASTATIN
     Indication: DYSLIPIDAEMIA
     Route: 048
  7. VENETOCLAX. [Suspect]
     Active Substance: VENETOCLAX
     Route: 048
     Dates: start: 20200718, end: 20200718
  8. VENETOCLAX. [Suspect]
     Active Substance: VENETOCLAX
     Indication: ACUTE MYELOID LEUKAEMIA
     Route: 048
     Dates: start: 20200716, end: 20200716
  9. LEVETIRACETAM. [Concomitant]
     Active Substance: LEVETIRACETAM
     Indication: NEURALGIA
     Route: 048
  10. LYRICA [Concomitant]
     Active Substance: PREGABALIN
     Indication: NEURALGIA
     Route: 048
  11. ASPACARDIN [Concomitant]
     Indication: MYOCARDIAL ISCHAEMIA
     Dosage: 39/12 MILIGRAMS
     Route: 048
  12. CONCOR [Concomitant]
     Active Substance: BISOPROLOL FUMARATE
     Indication: MYOCARDIAL ISCHAEMIA
     Route: 048
  13. NORVASC [Concomitant]
     Active Substance: AMLODIPINE BESYLATE
     Indication: HYPERTENSION
     Route: 048
  14. ARMIDEX [Concomitant]
     Indication: BREAST CANCER
     Route: 048

REACTIONS (5)
  - Cardio-respiratory arrest [Fatal]
  - Sepsis [Fatal]
  - Septic shock [Fatal]
  - Febrile neutropenia [Fatal]
  - Toxic shock syndrome [Fatal]

NARRATIVE: CASE EVENT DATE: 20200810
